FAERS Safety Report 10157575 (Version 1)
Quarter: 2014Q2

REPORT INFORMATION
  Report Type: Spontaneous
  Country: FR (occurrence: FR)
  Receive Date: 20140507
  Receipt Date: 20140507
  Transmission Date: 20141212
  Serious: Yes (Hospitalization)
  Sender: FDA-Public Use
  Company Number: FR-PFIZER INC-2014123955

PATIENT
  Age: 1 Year
  Sex: Male

DRUGS (1)
  1. ORELOX [Suspect]
     Indication: PHARYNGITIS
     Dosage: UNK
     Route: 048
     Dates: start: 20140403, end: 20140405

REACTIONS (2)
  - Henoch-Schonlein purpura [Recovered/Resolved]
  - Gait disturbance [Recovered/Resolved]
